FAERS Safety Report 12356156 (Version 1)
Quarter: 2016Q2

REPORT INFORMATION
  Report Type: Report from Study
  Country: US (occurrence: US)
  Receive Date: 20160511
  Receipt Date: 20160511
  Transmission Date: 20160815
  Serious: Yes (Other)
  Sender: FDA-Public Use
  Company Number: US-UCBSA-2016017135

PATIENT
  Sex: Female

DRUGS (2)
  1. CERTOLIZUMAB PEGOL [Suspect]
     Active Substance: CERTOLIZUMAB PEGOL
     Indication: PRODUCT USED FOR UNKNOWN INDICATION
     Dosage: UNK
  2. PENTASA [Concomitant]
     Active Substance: MESALAMINE
     Indication: PRODUCT USED FOR UNKNOWN INDICATION
     Dosage: 1000 MG, 4X/DAY (QID)

REACTIONS (9)
  - Nerve injury [Unknown]
  - Depression [Unknown]
  - Rib deformity [Unknown]
  - Malaise [Unknown]
  - Frustration tolerance decreased [Unknown]
  - Brain neoplasm [Unknown]
  - Crohn^s disease [Unknown]
  - Stress [Unknown]
  - Scoliosis [Unknown]
